FAERS Safety Report 5587655-3 (Version None)
Quarter: 2008Q1

REPORT INFORMATION
  Report Type: 
  Country: None (occurrence: None)
  Receive Date: 20080108
  Receipt Date: 20071226
  Transmission Date: 20080703
  Serious: Yes (Death, Hospitalization)
  Sender: FDA-Public Use
  Company Number: 163-21880-07110591

PATIENT
  Age: 70 Year
  Sex: Male

DRUGS (5)
  1. REVLIMID [Suspect]
     Indication: MULTIPLE MYELOMA
     Dosage: 15 MG, DAILY, ORAL
     Route: 047
     Dates: start: 20070919, end: 20071023
  2. DECADRON [Concomitant]
  3. COUMDAIN (WARFARIN SODIUM) [Concomitant]
  4. ALLOPURINOL [Concomitant]
  5. POTASSIUM (POTASSIUM) [Concomitant]

REACTIONS (3)
  - DRUG TOXICITY [None]
  - HEPATIC FAILURE [None]
  - JAUNDICE CHOLESTATIC [None]
